FAERS Safety Report 8368839-8 (Version None)
Quarter: 2012Q2

REPORT INFORMATION
  Report Type: 
  Country: None (occurrence: None)
  Receive Date: 20120518
  Receipt Date: 20120502
  Transmission Date: 20120825
  Serious: Yes (Other)
  Sender: FDA-Public Use
  Company Number: FR-VERTEX PHARMACEUTICALS INC.-000000000000000696

PATIENT
  Age: 67 Year
  Sex: Male

DRUGS (4)
  1. INCIVO [Suspect]
     Indication: HEPATITIS C
     Dosage: DOSAGE FORM: TABLET
  2. ISENTRESS [Concomitant]
     Indication: HIV INFECTION
  3. REYATAZ [Concomitant]
     Indication: PRODUCT USED FOR UNKNOWN INDICATION
  4. ANTI-VIRAL DRUG [Concomitant]
     Indication: HEPATITIS C

REACTIONS (3)
  - RASH [None]
  - OFF LABEL USE [None]
  - FATIGUE [None]
